FAERS Safety Report 9925694 (Version 2)
Quarter: 2014Q1

REPORT INFORMATION
  Report Type: Spontaneous
  Country: US (occurrence: US)
  Receive Date: 20140226
  Receipt Date: 20140318
  Transmission Date: 20141002
  Serious: Yes (Death, Hospitalization)
  Sender: FDA-Public Use
  Company Number: US-BAXTER-2014BAX008936

PATIENT
  Sex: Female

DRUGS (4)
  1. DIANEAL LOW CALCIUM (ULTRABAG) [Suspect]
     Indication: RENAL FAILURE CHRONIC
     Dosage: 4 BAGS
     Route: 033
     Dates: start: 201211, end: 20140218
  2. DIANEAL LOW CALCIUM (ULTRABAG) [Suspect]
     Indication: PERITONEAL DIALYSIS
  3. EXTRANEAL [Suspect]
     Indication: RENAL FAILURE CHRONIC
     Route: 033
     Dates: start: 2013, end: 201312
  4. EXTRANEAL [Suspect]
     Indication: PERITONEAL DIALYSIS

REACTIONS (5)
  - Death [Fatal]
  - Convulsion [Not Recovered/Not Resolved]
  - Blood albumin decreased [Unknown]
  - Respiratory arrest [Unknown]
  - Dehydration [Unknown]
